FAERS Safety Report 11199330 (Version 3)
Quarter: 2019Q1

REPORT INFORMATION
  Report Type: Spontaneous
  Country: GB (occurrence: GB)
  Receive Date: 20150616
  Receipt Date: 20190207
  Transmission Date: 20190417
  Serious: Yes (Other)
  Sender: FDA-Public Use
  Company Number: GB-ALSI-201500131

PATIENT
  Age: 24 Year
  Sex: Male

DRUGS (1)
  1. NITROUS OXIDE. [Suspect]
     Active Substance: NITROUS OXIDE
     Indication: SUBSTANCE USE
     Route: 055

REACTIONS (3)
  - Substance use [Recovered/Resolved]
  - Abnormal behaviour [Recovered/Resolved]
  - Road traffic accident [Recovered/Resolved]
